FAERS Safety Report 23591641 (Version 1)
Quarter: 2024Q1

REPORT INFORMATION
  Report Type: Spontaneous
  Country: US (occurrence: None)
  Receive Date: 20240302
  Receipt Date: 20240302
  Transmission Date: 20240410
  Serious: Yes (Hospitalization)
  Sender: FDA-Public Use
  Company Number: None

PATIENT
  Sex: Male
  Weight: 103 kg

DRUGS (2)
  1. DARATUMUMAB\HYALURONIDASE-FIHJ [Suspect]
     Active Substance: DARATUMUMAB\HYALURONIDASE-FIHJ
     Dates: end: 20240214
  2. LENALIDOMIDE [Suspect]
     Active Substance: LENALIDOMIDE
     Dates: end: 20240219

REACTIONS (7)
  - Abdominal pain [None]
  - Muscle spasms [None]
  - Diarrhoea [None]
  - Rectal haemorrhage [None]
  - Nausea [None]
  - Decreased appetite [None]
  - Colitis [None]

NARRATIVE: CASE EVENT DATE: 20240220
